FAERS Safety Report 15762086 (Version 5)
Quarter: 2019Q3

REPORT INFORMATION
  Report Type: Spontaneous
  Country: US (occurrence: US)
  Receive Date: 20181226
  Receipt Date: 20190709
  Transmission Date: 20191004
  Serious: No
  Sender: FDA-Public Use
  Company Number: US-PFIZER INC-2018528759

PATIENT
  Age: 57 Year
  Sex: Female
  Weight: 83 kg

DRUGS (8)
  1. LAPATINIB [Concomitant]
     Active Substance: LAPATINIB
     Indication: CHEMOTHERAPY
     Dosage: UNK
  2. TRASTUZUMAB. [Concomitant]
     Active Substance: TRASTUZUMAB
     Indication: CHEMOTHERAPY
     Dosage: UNK
  3. PARAPLATIN [Concomitant]
     Active Substance: CARBOPLATIN
     Indication: CHEMOTHERAPY
     Dosage: UNK
  4. TRASTUZUMAB. [Concomitant]
     Active Substance: TRASTUZUMAB
     Dosage: UNK
  5. DOCETAXEL. [Suspect]
     Active Substance: DOCETAXEL
     Indication: BREAST CANCER FEMALE
     Dosage: 145 MG, CYCLIC (EVERY THREE WEEKS, 06 CYCLES)
     Dates: start: 20101230, end: 20110510
  6. LEVOTHYROXINE. [Concomitant]
     Active Substance: LEVOTHYROXINE
     Indication: HORMONE THERAPY
     Dosage: UNK
     Dates: start: 1991
  7. DOCETAXEL. [Suspect]
     Active Substance: DOCETAXEL
     Indication: BREAST CANCER FEMALE
     Dosage: 145 MG, CYCLIC (EVERY THREE WEEKS, 06 CYCLES)
     Dates: start: 20101230, end: 20110510
  8. DOCEFREZ [Suspect]
     Active Substance: DOCETAXEL ANHYDROUS
     Indication: BREAST CANCER FEMALE
     Dosage: 145 MG, CYCLIC (EVERY THREE WEEKS, 06 CYCLES)
     Dates: start: 20101230, end: 20110510

REACTIONS (5)
  - Alopecia [Not Recovered/Not Resolved]
  - Hair colour changes [Not Recovered/Not Resolved]
  - Madarosis [Not Recovered/Not Resolved]
  - Hair texture abnormal [Not Recovered/Not Resolved]
  - Hair disorder [Not Recovered/Not Resolved]

NARRATIVE: CASE EVENT DATE: 20110621
